FAERS Safety Report 15566103 (Version 1)
Quarter: 2018Q4

REPORT INFORMATION
  Report Type: Spontaneous
  Country: IN (occurrence: IN)
  Receive Date: 20181030
  Receipt Date: 20181030
  Transmission Date: 20190205
  Serious: Yes (Other)
  Sender: FDA-Public Use
  Company Number: IN-PFIZER INC-2018440631

PATIENT
  Age: 6 Month
  Sex: Male

DRUGS (3)
  1. MEROPENEM. [Suspect]
     Active Substance: MEROPENEM
     Indication: MENINGITIS NEONATAL
     Dosage: 240 MG, 3X/DAY (240 MG 8 HOURLY)
  2. VANCOMYCIN [Suspect]
     Active Substance: VANCOMYCIN
     Indication: MENINGITIS NEONATAL
     Dosage: 10 MG, 2X/DAY (10 MG 12 HOURLY)
  3. VANCOMYCIN [Suspect]
     Active Substance: VANCOMYCIN
     Dosage: 120 MG, 3X/DAY (120 MG 8 HOURLY)

REACTIONS (3)
  - Central nervous system infection [Recovered/Resolved]
  - Candida infection [Recovered/Resolved]
  - Device related infection [Recovered/Resolved]
